FAERS Safety Report 18054140 (Version 2)
Quarter: 2020Q4

REPORT INFORMATION
  Report Type: Spontaneous
  Country: FR (occurrence: FR)
  Receive Date: 20200722
  Receipt Date: 20201021
  Transmission Date: 20210113
  Serious: Yes (Other)
  Sender: FDA-Public Use
  Company Number: FR-MYLANLABS-2020M1064782

PATIENT
  Age: 9 Year
  Sex: Female
  Weight: 32 kg

DRUGS (6)
  1. AERIUS (DESLORATADINE) [Concomitant]
     Active Substance: DESLORATADINE
     Indication: ASTHMA
     Dosage: 5 MILLIGRAM, QD
     Route: 048
     Dates: start: 201909
  2. SYMBICORT [Concomitant]
     Active Substance: BUDESONIDE\FORMOTEROL FUMARATE DIHYDRATE
     Indication: ASTHMA
     Dosage: 2 DOSAGE FORM, QD
     Route: 055
     Dates: start: 201909
  3. MULTICROM [Concomitant]
     Active Substance: CROMOLYN SODIUM
     Indication: EAR INFECTION
     Dosage: UNK
     Route: 001
     Dates: start: 2019
  4. APRANAX                            /00256202/ [Concomitant]
     Active Substance: NAPROXEN
     Indication: PAIN
     Dosage: UNK
     Route: 048
     Dates: start: 20200214
  5. MONTELUKAST [Suspect]
     Active Substance: MONTELUKAST SODIUM
     Indication: ASTHMA
     Dosage: UNK
     Route: 048
     Dates: start: 201911, end: 202005
  6. NASONEX [Concomitant]
     Active Substance: MOMETASONE FUROATE
     Indication: RHINITIS ALLERGIC
     Dosage: UNK
     Route: 055
     Dates: start: 2019, end: 2019

REACTIONS (4)
  - Anxiety [Recovered/Resolved]
  - Nightmare [Not Recovered/Not Resolved]
  - Somatic symptom disorder [Recovered/Resolved]
  - Hallucination, auditory [Recovered/Resolved]

NARRATIVE: CASE EVENT DATE: 201911
